FAERS Safety Report 24812020 (Version 1)
Quarter: 2025Q1

REPORT INFORMATION
  Report Type: Spontaneous
  Country: US (occurrence: None)
  Receive Date: 20250106
  Receipt Date: 20250106
  Transmission Date: 20250409
  Serious: Yes (Hospitalization)
  Sender: FDA-CTU
  Company Number: None

PATIENT
  Age: 41 Year
  Sex: Male
  Weight: 85.5 kg

DRUGS (6)
  1. PROLIXIN DECANOATE [Suspect]
     Active Substance: FLUPHENAZINE DECANOATE
     Indication: Bipolar disorder
     Dates: start: 20231029, end: 20231106
  2. OLANZAPINE [Concomitant]
     Active Substance: OLANZAPINE
  3. dexosin [Concomitant]
  4. PREGABALIN [Concomitant]
     Active Substance: PREGABALIN
  5. BUPROPION [Concomitant]
     Active Substance: BUPROPION
  6. VITAMIN D [Concomitant]
     Active Substance: VITAMIN D NOS

REACTIONS (2)
  - Mental impairment [None]
  - Tongue movement disturbance [None]

NARRATIVE: CASE EVENT DATE: 20231106
